FAERS Safety Report 6903899-X (Version None)
Quarter: 2010Q3

REPORT INFORMATION
  Report Type: 
  Country: None (occurrence: None)
  Receive Date: 20100804
  Receipt Date: 20090202
  Transmission Date: 20110219
  Serious: No
  Sender: FDA-Public Use
  Company Number: US-PFIZER INC-2009164220

PATIENT
  Sex: Female
  Weight: 74.8 kg

DRUGS (5)
  1. LYRICA [Suspect]
     Indication: TRIGEMINAL NEURALGIA
     Dosage: UNK
     Dates: start: 20080101
  2. SYNTHROID [Concomitant]
     Dosage: UNK
  3. CALCIUM [Concomitant]
     Dosage: 1500 MG, UNK
  4. PROGESTERONE [Concomitant]
     Dosage: UNK
  5. ESTROGENS SOL/INJ [Concomitant]
     Dosage: UNK

REACTIONS (2)
  - BLOOD CALCIUM DECREASED [None]
  - WEIGHT INCREASED [None]
